FAERS Safety Report 24189125 (Version 1)
Quarter: 2024Q3

REPORT INFORMATION
  Report Type: Report from Study
  Country: US (occurrence: US)
  Receive Date: 20240808
  Receipt Date: 20240808
  Transmission Date: 20241017
  Serious: Yes (Hospitalization)
  Sender: GILEAD
  Company Number: US-GILEAD-2024-0683420

PATIENT
  Sex: Female

DRUGS (1)
  1. AZTREONAM LYSINE [Suspect]
     Active Substance: AZTREONAM LYSINE
     Indication: Cystic fibrosis lung
     Dosage: INHALE 1 ML VIAL (75MG TOTAL) VIA ALTERA NEBULIZER 3 TIMES DAILY. ALTERNATE 28 DAYS ON + 28 DAYS OFF
     Route: 055

REACTIONS (1)
  - Haemoptysis [Unknown]
